FAERS Safety Report 8973679 (Version 1)
Quarter: 2012Q4

REPORT INFORMATION
  Report Type: 
  Country: US (occurrence: US)
  Receive Date: 20121218
  Receipt Date: 20121218
  Transmission Date: 20130627
  Serious: Yes (Other)
  Sender: FDA-Public Use
  Company Number: US-BRISTOL-MYERS SQUIBB COMPANY-16920944

PATIENT
  Age: 65 Year
  Sex: Female

DRUGS (3)
  1. ABILIFY [Suspect]
  2. LISINOPRIL [Concomitant]
  3. PRAVASTATIN SODIUM [Concomitant]

REACTIONS (3)
  - Diabetes mellitus [Unknown]
  - Muscle spasms [Unknown]
  - Restless legs syndrome [Unknown]
